FAERS Safety Report 4593685-0 (Version None)
Quarter: 2005Q1

REPORT INFORMATION
  Report Type: 
  Country: None (occurrence: None)
  Receive Date: 20050224
  Receipt Date: 20041102
  Transmission Date: 20050727
  Serious: No
  Sender: FDA-Public Use
  Company Number: US-BRISTOL-MYERS SQUIBB COMPANY-12754487

PATIENT
  Age: 49 Year
  Sex: Female
  Weight: 50 kg

DRUGS (1)
  1. EXCEDRIN (MIGRAINE) [Suspect]
     Indication: MIGRAINE
     Dosage: DOSE INCREASED TO 2 TABS EVERY 6 HRS. THEN REDUCED BACK TO PREVIOUS DOSE OF 1 TAB/3-4 HRS.
     Route: 048

REACTIONS (2)
  - HYPOAESTHESIA [None]
  - MEDICATION ERROR [None]
